FAERS Safety Report 9526498 (Version 1)
Quarter: 2013Q3

REPORT INFORMATION
  Report Type: Spontaneous
  Country: JP (occurrence: JP)
  Receive Date: 20130916
  Receipt Date: 20130916
  Transmission Date: 20140515
  Serious: Yes (Hospitalization)
  Sender: FDA-Public Use
  Company Number: PHHY2013JP101578

PATIENT
  Age: 70 Year
  Sex: Male

DRUGS (1)
  1. EXFORGE [Suspect]
     Indication: HYPERTENSION
     Dosage: 2 DF DAILY IN TWO DIVIDED DOSES
     Route: 048
     Dates: start: 201305

REACTIONS (1)
  - Cerebral infarction [Recovered/Resolved]
